FAERS Safety Report 7580499-2 (Version None)
Quarter: 2011Q2

REPORT INFORMATION
  Report Type: 
  Country: None (occurrence: None)
  Receive Date: 20110629
  Receipt Date: 20110624
  Transmission Date: 20111010
  Serious: Yes (Other)
  Sender: FDA-Public Use
  Company Number: A0932953A

PATIENT
  Sex: Female

DRUGS (2)
  1. NO CONCURRENT MEDICATION [Concomitant]
  2. ADVAIR DISKUS 100/50 [Suspect]
     Indication: ASTHMA
     Dosage: 1PUFF TWICE PER DAY
     Route: 055
     Dates: start: 20110401

REACTIONS (5)
  - SENSATION OF HEAVINESS [None]
  - PARAESTHESIA [None]
  - HYPOAESTHESIA [None]
  - ASTHMA [None]
  - DRUG INEFFECTIVE [None]
